FAERS Safety Report 4960935-8 (Version None)
Quarter: 2006Q1

REPORT INFORMATION
  Report Type: 
  Country: None (occurrence: None)
  Receive Date: 20060207
  Receipt Date: 20050606
  Transmission Date: 20060701
  Serious: No
  Sender: FDA-Public Use
  Company Number: 05P-163-0302475-00

PATIENT
  Age: 65 Year
  Sex: Female

DRUGS (3)
  1. TRICOR [Suspect]
     Dosage: 10 MG
     Dates: start: 20050323, end: 20050405
  2. CRESTOR [Suspect]
     Dosage: SEE IMAGE
     Dates: end: 20050323
  3. CRESTOR [Suspect]
     Dosage: SEE IMAGE
     Dates: start: 20050323, end: 20050405

REACTIONS (3)
  - BLOOD CREATININE INCREASED [None]
  - RHABDOMYOLYSIS [None]
  - URINARY TRACT INFECTION [None]
